FAERS Safety Report 4721650-9 (Version None)
Quarter: 2005Q3

REPORT INFORMATION
  Report Type: 
  Country: None (occurrence: None)
  Receive Date: 20050721
  Receipt Date: 20050202
  Transmission Date: 20060218
  Serious: No
  Sender: FDA-Public Use
  Company Number: US-BRISTOL-MYERS SQUIBB COMPANY-12846556

PATIENT
  Age: 45 Year
  Sex: Female

DRUGS (10)
  1. COUMADIN [Suspect]
     Dosage: NDC# 00056016870
  2. DYAZIDE [Concomitant]
  3. ELAVIL [Concomitant]
  4. MEXITIL [Concomitant]
  5. NEURONTIN [Concomitant]
  6. PAXIL CR [Concomitant]
  7. ZANAFLEX [Concomitant]
  8. OXYCODONE HCL [Concomitant]
     Dosage: 5 MG, UP TO 8 TABLETS DAILY
  9. OXYCONTIN [Concomitant]
  10. OXYCODAN [Concomitant]

REACTIONS (2)
  - ACCIDENT AT WORK [None]
  - ACTIVATED PARTIAL THROMBOPLASTIN TIME SHORTENED [None]
